FAERS Safety Report 5649770-5 (Version None)
Quarter: 2008Q1

REPORT INFORMATION
  Report Type: 
  Country: None (occurrence: None)
  Receive Date: 20080304
  Receipt Date: 20080221
  Transmission Date: 20080703
  Serious: Yes (Other)
  Sender: FDA-Public Use
  Company Number: US-PFIZER INC-2008017075

PATIENT
  Sex: Female
  Weight: 65 kg

DRUGS (11)
  1. LYRICA [Suspect]
     Indication: PAIN IN EXTREMITY
     Dates: start: 20070101, end: 20080208
  2. ESTRATEST [Concomitant]
  3. SEROQUEL [Concomitant]
  4. PRILOSEC [Concomitant]
  5. XANAX [Concomitant]
  6. BACLOFEN [Concomitant]
  7. LORTAB [Concomitant]
  8. PROMETHAZINE [Concomitant]
  9. CYMBALTA [Concomitant]
  10. CELEBREX [Concomitant]
  11. ALL OTHER THERAPEUTIC PRODUCTS [Concomitant]

REACTIONS (8)
  - BALANCE DISORDER [None]
  - DIZZINESS [None]
  - FALL [None]
  - HEAD INJURY [None]
  - HEADACHE [None]
  - LOSS OF CONSCIOUSNESS [None]
  - SWELLING [None]
  - TREMOR [None]
